FAERS Safety Report 14553229 (Version 2)
Quarter: 2018Q1

REPORT INFORMATION
  Report Type: Spontaneous
  Country: AM (occurrence: AM)
  Receive Date: 20180220
  Receipt Date: 20180226
  Transmission Date: 20180509
  Serious: Yes (Hospitalization, Other)
  Sender: FDA-Public Use
  Company Number: AM-PFIZER INC-2018068893

PATIENT
  Age: 59 Year
  Sex: Male

DRUGS (7)
  1. LINEZOLID. [Suspect]
     Active Substance: LINEZOLID
     Dosage: UNK, 1X/DAY (600 UNK, QD)
     Dates: start: 20170302, end: 20171221
  2. CLOFAZIMINE [Suspect]
     Active Substance: CLOFAZIMINE
     Indication: PULMONARY TUBERCULOSIS
     Dosage: UNK, 1X/DAY (200/100 UNK, QD)
     Dates: start: 20170206, end: 20170222
  3. CYCLOSERINE. [Suspect]
     Active Substance: CYCLOSERINE
     Indication: PULMONARY TUBERCULOSIS
     Dosage: UNK, 1X/DAY (500 UNK, QD)
     Dates: start: 20170206
  4. LEVOFLOXACIN. [Suspect]
     Active Substance: LEVOFLOXACIN
     Indication: PULMONARY TUBERCULOSIS
     Dosage: UNK, 1X/DAY (1000 UNK, QD)
     Dates: start: 20170206
  5. LINEZOLID. [Suspect]
     Active Substance: LINEZOLID
     Indication: PULMONARY TUBERCULOSIS
     Dosage: UNK, 1X/DAY (600 UNK, QD)
     Dates: start: 20170206, end: 20170222
  6. CLOFAZIMINE [Suspect]
     Active Substance: CLOFAZIMINE
     Dosage: UNK
     Dates: start: 20170301
  7. DELAMANID [Suspect]
     Active Substance: DELAMANID
     Indication: PULMONARY TUBERCULOSIS
     Dosage: UNK, 1X/DAY (200 UNK, QD)
     Dates: start: 20170206

REACTIONS (6)
  - Renal impairment [Unknown]
  - Insomnia [Unknown]
  - Hepatic enzyme increased [Unknown]
  - Treatment failure [Unknown]
  - Euphoric mood [Unknown]
  - Anaemia [Not Recovered/Not Resolved]

NARRATIVE: CASE EVENT DATE: 20171212
